FAERS Safety Report 6608947-2 (Version None)
Quarter: 2010Q1

REPORT INFORMATION
  Report Type: 
  Country: None (occurrence: None)
  Receive Date: 20100301
  Receipt Date: 20100219
  Transmission Date: 20100710
  Serious: No
  Sender: FDA-Public Use
  Company Number: US-B.I. PHARMACEUTICALS,INC./RIDGEFIELD-2010-BP-02189BP

PATIENT
  Sex: Female

DRUGS (9)
  1. ZANTAC 150 [Suspect]
     Indication: DYSPEPSIA
     Dosage: 300 MG
     Route: 048
     Dates: start: 20100219, end: 20100219
  2. ZANTAC 150 [Suspect]
     Indication: ABDOMINAL DISCOMFORT
     Dosage: 150 MG
     Route: 048
     Dates: start: 20100220
  3. LISINOPRIL [Concomitant]
     Indication: HYPERTENSION
  4. VITAMIN E [Concomitant]
     Indication: SUPPLEMENTATION THERAPY
  5. CALCIUM WITH VITAMIN D [Concomitant]
     Indication: SUPPLEMENTATION THERAPY
  6. LORATADINE [Concomitant]
     Indication: HYPERSENSITIVITY
  7. FUROSEMIDE [Concomitant]
     Indication: DIURETIC THERAPY
  8. FLUTICASONE SPRAY [Concomitant]
     Indication: HYPERSENSITIVITY
     Route: 045
  9. HIBICLENS [Concomitant]
     Indication: STAPHYLOCOCCAL INFECTION
     Route: 061

REACTIONS (3)
  - ABDOMINAL DISCOMFORT [None]
  - DIZZINESS [None]
  - NAUSEA [None]
